FAERS Safety Report 5901866-6 (Version None)
Quarter: 2008Q3

REPORT INFORMATION
  Report Type: 
  Country: None (occurrence: None)
  Receive Date: 20080929
  Receipt Date: 20080206
  Transmission Date: 20090109
  Serious: Yes (Hospitalization, Disabling, Other)
  Sender: FDA-Public Use
  Company Number: GB-BAYER-200810293BNE

PATIENT
  Age: 66 Year
  Sex: Female
  Weight: 65 kg

DRUGS (3)
  1. FLUDARABINE PHOSPHATE [Suspect]
     Route: 048
     Dates: start: 20070105, end: 20070520
  2. CYCLOPHOSPHAMIDE [Suspect]
     Route: 048
     Dates: start: 20070105, end: 20070520
  3. RITUXIMAB [Suspect]
     Route: 042
     Dates: start: 20070105, end: 20070520

REACTIONS (2)
  - OPTIC NERVE DISORDER [None]
  - VISUAL ACUITY REDUCED [None]
